FAERS Safety Report 4677606-8 (Version None)
Quarter: 2005Q2

REPORT INFORMATION
  Report Type: 
  Country: None (occurrence: None)
  Receive Date: 20050531
  Receipt Date: 20041027
  Transmission Date: 20051028
  Serious: Yes (Hospitalization)
  Sender: FDA-Public Use
  Company Number: BR-ROCHE-384588

PATIENT
  Age: 40 Year
  Sex: Female

DRUGS (6)
  1. CAPECITABINE [Suspect]
     Indication: BREAST CANCER
     Dosage: GIVEN FROM DAYS ONE TO FOURTEEN OF A THREE WEEK CYCLE.
     Route: 048
     Dates: start: 20040831
  2. CAPECITABINE [Suspect]
     Dosage: DOSE WAS LOWERED.
     Route: 048
     Dates: start: 20041208, end: 20041214
  3. IXABEPILONE [Suspect]
     Indication: BREAST CANCER
     Dosage: INFUSED OVER THREE HOURS.
     Route: 042
     Dates: start: 20040831
  4. IXABEPILONE [Suspect]
     Route: 042
     Dates: start: 20041208
  5. IXABEPILONE [Suspect]
     Dosage: DOSE WAS REDUCED.
     Route: 042
  6. CIPRAMIL [Concomitant]
     Dates: start: 20040820

REACTIONS (4)
  - CHILLS [None]
  - GASTRITIS [None]
  - INFECTION [None]
  - NEUTROPENIA [None]
